FAERS Safety Report 20870857 (Version 2)
Quarter: 2022Q2

REPORT INFORMATION
  Report Type: Spontaneous
  Country: US (occurrence: US)
  Receive Date: 20220525
  Receipt Date: 20220623
  Transmission Date: 20220721
  Serious: Yes (Other)
  Sender: FDA-Public Use
  Company Number: US-PFIZER INC-202200714435

PATIENT
  Age: 87 Year
  Sex: Female

DRUGS (2)
  1. PREMARIN [Suspect]
     Active Substance: ESTROGENS, CONJUGATED
     Indication: Vaginal discharge
     Dosage: UNK
  2. PEPCID COMPLETE [Concomitant]
     Active Substance: CALCIUM CARBONATE\FAMOTIDINE\MAGNESIUM HYDROXIDE
     Dosage: UNK

REACTIONS (5)
  - Postmenopausal haemorrhage [Unknown]
  - Body height decreased [Unknown]
  - Head injury [Unknown]
  - Off label use [Unknown]
  - Contraindicated product administered [Unknown]
